FAERS Safety Report 21310673 (Version 2)
Quarter: 2022Q3

REPORT INFORMATION
  Report Type: Spontaneous
  Country: US (occurrence: US)
  Receive Date: 20220909
  Receipt Date: 20220920
  Transmission Date: 20221026
  Serious: No
  Sender: FDA-Public Use
  Company Number: US-SAGE-2022SAGE000091

PATIENT
  Age: 27 Year
  Sex: Female

DRUGS (1)
  1. ZULRESSO [Suspect]
     Active Substance: BREXANOLONE
     Indication: Perinatal depression
     Dosage: UNK
     Route: 042
     Dates: start: 20220826, end: 20220828

REACTIONS (3)
  - Incorrect product administration duration [Unknown]
  - Therapeutic product effect incomplete [Unknown]
  - Thrombosis [Unknown]

NARRATIVE: CASE EVENT DATE: 20220826
